FAERS Safety Report 6055877-3 (Version None)
Quarter: 2009Q1

REPORT INFORMATION
  Report Type: 
  Country: None (occurrence: None)
  Receive Date: 20090128
  Receipt Date: 20090122
  Transmission Date: 20090719
  Serious: Yes (Hospitalization)
  Sender: FDA-Public Use
  Company Number: US-B.I. PHARMACEUTICALS,INC./RIDGEFIELD-2009-BP-00834BP

PATIENT
  Sex: Male

DRUGS (10)
  1. SPIRIVA [Suspect]
     Indication: CHRONIC OBSTRUCTIVE PULMONARY DISEASE
     Dosage: 18MCG
     Route: 055
     Dates: start: 20080101, end: 20090101
  2. SPIRIVA [Suspect]
     Indication: BRONCHITIS
  3. SPIRIVA [Suspect]
     Indication: EMPHYSEMA
  4. ADVAIR DISKUS 100/50 [Concomitant]
     Indication: CHRONIC OBSTRUCTIVE PULMONARY DISEASE
  5. ZOLPIDEM [Concomitant]
     Indication: SLEEP DISORDER
  6. SERTRALINE [Concomitant]
     Indication: DEPRESSION
  7. WARFARIN SODIUM [Concomitant]
     Indication: ATRIAL FIBRILLATION
  8. OMEPRAZOLE [Concomitant]
     Indication: ULCER HAEMORRHAGE
  9. METOPROLOL TARTRATE [Concomitant]
     Indication: ATRIAL FIBRILLATION
  10. ASPIRIN [Concomitant]
     Indication: ATRIAL FIBRILLATION

REACTIONS (4)
  - ANTIMICROBIAL SUSCEPTIBILITY TEST RESISTANT [None]
  - DRUG INEFFECTIVE [None]
  - DRY MOUTH [None]
  - PNEUMONIA [None]
